FAERS Safety Report 24381741 (Version 1)
Quarter: 2024Q4

REPORT INFORMATION
  Report Type: Report from Study
  Country: BR (occurrence: BR)
  Receive Date: 20241001
  Receipt Date: 20241001
  Transmission Date: 20250115
  Serious: Yes (Hospitalization, Other)
  Sender: JOHNSON AND JOHNSON
  Company Number: BR-JNJFOC-20240967032

PATIENT
  Age: 35 Year
  Sex: Female
  Weight: 57 kg

DRUGS (1)
  1. INFLIXIMAB [Suspect]
     Active Substance: INFLIXIMAB
     Indication: Crohn^s disease
     Route: 041
     Dates: start: 20211206, end: 20220222

REACTIONS (2)
  - Pneumonia [Unknown]
  - Tuberculosis [Unknown]
